FAERS Safety Report 8545652-X (Version None)
Quarter: 2012Q3

REPORT INFORMATION
  Report Type: 
  Country: None (occurrence: None)
  Receive Date: 20120727
  Receipt Date: 20120724
  Transmission Date: 20120928
  Serious: Yes (Hospitalization, Other)
  Sender: FDA-Public Use
  Company Number: US-PFIZER INC-2012179334

PATIENT
  Sex: Female

DRUGS (1)
  1. CHANTIX [Suspect]
     Dosage: UNK

REACTIONS (9)
  - FOOT FRACTURE [None]
  - ANAEMIA [None]
  - CONCUSSION [None]
  - LOWER LIMB FRACTURE [None]
  - STARVATION [None]
  - UPPER LIMB FRACTURE [None]
  - CARDIAC FAILURE CONGESTIVE [None]
  - PHYSICAL ASSAULT [None]
  - ACTIVITIES OF DAILY LIVING IMPAIRED [None]
